FAERS Safety Report 6414090-8 (Version None)
Quarter: 2009Q4

REPORT INFORMATION
  Report Type: 
  Country: None (occurrence: None)
  Receive Date: 20091022
  Receipt Date: 20091022
  Transmission Date: 20100525
  Serious: No
  Sender: FDA-Public Use
  Company Number: None

PATIENT
  Age: 80 Year
  Sex: Male
  Weight: 99.7913 kg

DRUGS (2)
  1. FLECTOR [Suspect]
     Indication: BACK PAIN
     Dosage: 1 PATCH 1 TIME 060
     Dates: start: 20080729, end: 20080814
  2. FLECTOR [Suspect]

REACTIONS (2)
  - PRODUCT QUALITY ISSUE [None]
  - TREATMENT FAILURE [None]
